FAERS Safety Report 22288782 (Version 1)
Quarter: 2023Q2

REPORT INFORMATION
  Report Type: Spontaneous
  Country: ES (occurrence: ES)
  Receive Date: 20230505
  Receipt Date: 20230505
  Transmission Date: 20230721
  Serious: Yes (Hospitalization, Other)
  Sender: FDA-Public Use
  Company Number: ES-VELOXIS PHARMACEUTICALS-2020VELES-000499

PATIENT
  Age: 65 Year
  Sex: Male

DRUGS (10)
  1. TACROLIMUS [Interacting]
     Active Substance: TACROLIMUS
     Indication: Immunosuppression
     Dosage: UNK
     Dates: start: 202003
  2. LOPINAVIR\RITONAVIR [Interacting]
     Active Substance: LOPINAVIR\RITONAVIR
     Indication: COVID-19
     Dosage: 1 DOSAGE FORM, QD, 200/100MG (5 DAY)
     Route: 048
     Dates: start: 202003
  3. LOPINAVIR\RITONAVIR [Interacting]
     Active Substance: LOPINAVIR\RITONAVIR
     Dosage: UNK, BID
     Route: 048
     Dates: start: 202003
  4. PREDNISONE [Suspect]
     Active Substance: PREDNISONE
     Indication: Immunosuppression
     Dosage: UNK
  5. PREDNISONE [Suspect]
     Active Substance: PREDNISONE
     Indication: Immunosuppressant drug therapy
     Dosage: UNK
  6. MYCOPHENOLIC ACID [Suspect]
     Active Substance: MYCOPHENOLIC ACID
     Indication: Immunosuppression
     Dosage: UNK (DOSE REDUCE)
     Dates: start: 202003
  7. MYCOPHENOLIC ACID [Suspect]
     Active Substance: MYCOPHENOLIC ACID
     Indication: Immunosuppressant drug therapy
     Dosage: UNK (DOSE REDUCE)
     Dates: start: 202003
  8. HYDROXYCHLOROQUINE [Suspect]
     Active Substance: HYDROXYCHLOROQUINE
     Indication: COVID-19
     Dosage: 800 MILLIGRAM, QD (400 MILLIGRAM (0.5 DAY)
     Route: 048
     Dates: start: 202003
  9. HYDROXYCHLOROQUINE [Suspect]
     Active Substance: HYDROXYCHLOROQUINE
     Dosage: 400 MILLIGRAM, 1 DAY
     Route: 048
     Dates: start: 202003
  10. HYDROXYCHLOROQUINE [Suspect]
     Active Substance: HYDROXYCHLOROQUINE
     Dosage: 800 MILLIGRAM, QD
     Route: 048
     Dates: start: 202003

REACTIONS (7)
  - C-reactive protein increased [Unknown]
  - Drug level increased [Unknown]
  - Gastrointestinal disorder [Unknown]
  - Nephropathy toxic [Unknown]
  - Acute respiratory distress syndrome [Unknown]
  - Renal failure [Recovered/Resolved]
  - Coronavirus infection [Unknown]

NARRATIVE: CASE EVENT DATE: 20200301
